FAERS Safety Report 11825760 (Version 1)
Quarter: 2015Q4

REPORT INFORMATION
  Report Type: Spontaneous
  Country: US (occurrence: None)
  Receive Date: 20151210
  Receipt Date: 20151210
  Transmission Date: 20160305
  Serious: Yes (Hospitalization)
  Sender: FDA-Public Use
  Company Number: None

PATIENT
  Age: 78 Year
  Sex: Female
  Weight: 78.7 kg

DRUGS (7)
  1. KCL [Concomitant]
     Active Substance: POTASSIUM CHLORIDE
  2. LEVOTHYROXINE. [Concomitant]
     Active Substance: LEVOTHYROXINE
  3. PRADAXA [Suspect]
     Active Substance: DABIGATRAN ETEXILATE MESYLATE
     Indication: ATRIAL FIBRILLATION
  4. LOPRESSOR [Concomitant]
     Active Substance: METOPROLOL TARTRATE
  5. ALENDRONATE [Concomitant]
     Active Substance: ALENDRONATE SODIUM
  6. CALCIUM WITH D [Concomitant]
     Active Substance: CALCIUM\VITAMIN D
  7. SINEMET [Concomitant]
     Active Substance: CARBIDOPA\LEVODOPA

REACTIONS (8)
  - Anaemia [None]
  - Hypovolaemic shock [None]
  - Abdominal pain [None]
  - Dizziness [None]
  - Splenic haematoma [None]
  - Splenic rupture [None]
  - Asthenia [None]
  - Fall [None]

NARRATIVE: CASE EVENT DATE: 20151118
